FAERS Safety Report 25652794 (Version 1)
Quarter: 2025Q3

REPORT INFORMATION
  Report Type: Spontaneous
  Country: GB (occurrence: GB)
  Receive Date: 20250807
  Receipt Date: 20250807
  Transmission Date: 20251021
  Serious: Yes (Disabling, Other)
  Sender: MSN LABORATORIES PRIVATE LIMITED
  Company Number: None

PATIENT

DRUGS (1)
  1. ATORVASTATIN [Suspect]
     Active Substance: ATORVASTATIN
     Indication: Blood cholesterol
     Route: 065
     Dates: start: 20130723, end: 20250601

REACTIONS (4)
  - Muscle rupture [Not Recovered/Not Resolved]
  - Nerve injury [Not Recovered/Not Resolved]
  - Tendon rupture [Not Recovered/Not Resolved]
  - Paraesthesia [Unknown]

NARRATIVE: CASE EVENT DATE: 20250101
